FAERS Safety Report 6767893-4 (Version None)
Quarter: 2010Q2

REPORT INFORMATION
  Report Type: 
  Country: None (occurrence: None)
  Receive Date: 20100614
  Receipt Date: 20100614
  Transmission Date: 20101027
  Serious: Yes (Hospitalization)
  Sender: FDA-Public Use
  Company Number: None

PATIENT
  Sex: Female
  Weight: 6.3504 kg

DRUGS (1)
  1. CONCENTRATED TYLENOL INFANT DROPS [Suspect]
     Indication: PYREXIA
     Dosage: .8 ML 4-5 HRS MOUTH
     Route: 048
     Dates: start: 20100423

REACTIONS (4)
  - DEHYDRATION [None]
  - MALAISE [None]
  - VOMITING [None]
  - WEIGHT DECREASED [None]
